FAERS Safety Report 6820545-4 (Version None)
Quarter: 2010Q3

REPORT INFORMATION
  Report Type: 
  Country: None (occurrence: None)
  Receive Date: 20100707
  Receipt Date: 20100628
  Transmission Date: 20110219
  Serious: Yes (Hospitalization, Other)
  Sender: FDA-Public Use
  Company Number: FR-BRISTOL-MYERS SQUIBB COMPANY-15179310

PATIENT
  Age: 50 Year
  Sex: Female

DRUGS (3)
  1. GLUCOPHAGE [Suspect]
     Indication: TYPE 2 DIABETES MELLITUS
     Route: 048
     Dates: start: 20081001
  2. BI-PROFENID [Suspect]
     Dosage: 150MG
     Dates: start: 20090101
  3. JANUVIA [Concomitant]
     Dosage: TABS. AT NIGHT

REACTIONS (7)
  - ABDOMINAL PAIN [None]
  - BRONCHITIS [None]
  - DEHYDRATION [None]
  - LACTIC ACIDOSIS [None]
  - NAUSEA [None]
  - RENAL FAILURE ACUTE [None]
  - VOMITING [None]
